FAERS Safety Report 9165345 (Version 2)
Quarter: 2013Q1

REPORT INFORMATION
  Report Type: Spontaneous
  Country: FR (occurrence: FR)
  Receive Date: 20130315
  Receipt Date: 20130329
  Transmission Date: 20140127
  Serious: Yes (Hospitalization, Other)
  Sender: FDA-Public Use
  Company Number: FR-BRISTOL-MYERS SQUIBB COMPANY-17468109

PATIENT
  Age: 60 Year
  Sex: Female

DRUGS (9)
  1. GLUCOPHAGE [Suspect]
  2. APROVEL [Suspect]
  3. LEVEMIR [Suspect]
  4. AMLOR [Suspect]
  5. JANUVIA [Suspect]
  6. DIAMICRON [Suspect]
  7. FLUDEX [Suspect]
  8. XARELTO [Suspect]
     Dates: start: 20121119, end: 20121215
  9. VENTOLINE [Concomitant]

REACTIONS (9)
  - Cardiac failure [Unknown]
  - Hyperkalaemia [Unknown]
  - Atrial fibrillation [Unknown]
  - Hyponatraemia [Unknown]
  - Renal failure [Not Recovered/Not Resolved]
  - Petechiae [Not Recovered/Not Resolved]
  - Normochromic normocytic anaemia [Unknown]
  - Cardiomegaly [Unknown]
  - Diabetes mellitus inadequate control [Unknown]
